FAERS Safety Report 10521545 (Version 1)
Quarter: 2014Q4

REPORT INFORMATION
  Report Type: Spontaneous
  Country: US (occurrence: None)
  Receive Date: 20141014
  Receipt Date: 20141014
  Transmission Date: 20150528
  Serious: No
  Sender: FDA-Public Use
  Company Number: None

PATIENT
  Sex: Female

DRUGS (2)
  1. SULFASALAZINE DR (EC) [Suspect]
     Active Substance: SULFASALAZINE
  2. SULFASALAZINE 500 MG [Suspect]
     Active Substance: SULFASALAZINE

REACTIONS (4)
  - Abdominal discomfort [None]
  - Nausea [None]
  - Retching [None]
  - Product formulation issue [None]

NARRATIVE: CASE EVENT DATE: 2014
